FAERS Safety Report 6605116-7 (Version None)
Quarter: 2010Q1

REPORT INFORMATION
  Report Type: 
  Country: None (occurrence: None)
  Receive Date: 20100226
  Receipt Date: 20100217
  Transmission Date: 20100710
  Serious: Yes (Hospitalization, Congenital Anomaly, Other)
  Sender: FDA-Public Use
  Company Number: TR-ELI_LILLY_AND_COMPANY-TR201002005237

PATIENT
  Sex: Male

DRUGS (4)
  1. HUMULIN R [Suspect]
     Indication: DIABETES MELLITUS
     Dosage: 20 IU, EACH MORNING
     Route: 064
     Dates: start: 20090317, end: 20091028
  2. HUMULIN R [Suspect]
     Dosage: 20 IU, OTHER
     Route: 064
     Dates: start: 20090317, end: 20091028
  3. HUMULIN R [Suspect]
     Dosage: 20 IU, EACH EVENING
     Route: 064
     Dates: start: 20090317, end: 20091028
  4. HUMULIN N [Suspect]
     Indication: DIABETES MELLITUS
     Dosage: 16 IU, DAILY (1/D)
     Route: 064
     Dates: start: 20090317, end: 20091028

REACTIONS (4)
  - CARDIAC SEPTAL DEFECT [None]
  - DRUG EXPOSURE DURING PREGNANCY [None]
  - EAR MALFORMATION [None]
  - OBSTRUCTIVE AIRWAYS DISORDER [None]
